FAERS Safety Report 14174514 (Version 1)
Quarter: 2017Q4

REPORT INFORMATION
  Report Type: Spontaneous
  Country: ES (occurrence: ES)
  Receive Date: 20171109
  Receipt Date: 20171109
  Transmission Date: 20180321
  Serious: Yes (Death, Other)
  Sender: FDA-Public Use
  Company Number: ES-BRISTOL-MYERS SQUIBB COMPANY-BMS-2017-100841

PATIENT
  Age: 84 Year
  Sex: Female

DRUGS (17)
  1. ELIQUIS [Suspect]
     Active Substance: APIXABAN
     Indication: CEREBROVASCULAR ACCIDENT PROPHYLAXIS
     Dosage: 5 MG, BID
     Route: 048
     Dates: start: 20160914, end: 201609
  2. TARGIN [Concomitant]
     Active Substance: NALOXONE HYDROCHLORIDE\OXYCODONE HYDROCHLORIDE
     Indication: TOXIC SKIN ERUPTION
     Dosage: 10 MG, BID
     Route: 048
     Dates: start: 2016, end: 2016
  3. EMCONCOR COR [Concomitant]
     Active Substance: BISOPROLOL
     Indication: HYPERTENSIVE HEART DISEASE
     Dosage: 1 TAB, BID
     Route: 048
     Dates: start: 2016, end: 2016
  4. PRADAXA [Concomitant]
     Active Substance: DABIGATRAN ETEXILATE MESYLATE
     Indication: CEREBROVASCULAR ACCIDENT
     Dosage: 110 MG, BID
     Route: 048
     Dates: start: 2016, end: 2016
  5. SEGURIL [Concomitant]
     Active Substance: FUROSEMIDE
     Indication: HYPERTENSIVE HEART DISEASE
     Dosage: 40 MG, TID
     Route: 048
     Dates: start: 2016, end: 2016
  6. OMEPRAZOL KERN PHARMA [Concomitant]
     Indication: GASTROOESOPHAGEAL REFLUX DISEASE
     Dosage: 20 MG, BID
     Route: 048
     Dates: start: 2014, end: 2016
  7. ZYLORIC [Concomitant]
     Active Substance: ALLOPURINOL
     Indication: METABOLIC DISORDER
     Dosage: 1 TAB, QD
     Route: 048
     Dates: start: 2016, end: 2016
  8. PRADAXA [Concomitant]
     Active Substance: DABIGATRAN ETEXILATE MESYLATE
     Indication: THROMBOSIS PROPHYLAXIS
     Route: 065
  9. MEGESTROL ACETATE. [Interacting]
     Active Substance: MEGESTROL ACETATE
     Indication: ANAEMIA
     Dosage: 160 MG, BID
     Route: 048
     Dates: start: 2016, end: 2016
  10. POLARAMINE [Concomitant]
     Active Substance: DEXCHLORPHENIRAMINE MALEATE
     Indication: TOXIC SKIN ERUPTION
     Dosage: 2 MG, TID
     Route: 048
     Dates: start: 2016, end: 2016
  11. ENALAPRIL ALTER [Concomitant]
     Active Substance: ENALAPRIL MALEATE
     Indication: HYPERTENSIVE HEART DISEASE
     Dosage: 1 TAB, QD
     Route: 048
     Dates: start: 2016, end: 2016
  12. ALDACTONE [Concomitant]
     Active Substance: SPIRONOLACTONE
     Indication: CARDIAC FAILURE CONGESTIVE
     Route: 065
  13. SEGURIL [Concomitant]
     Active Substance: FUROSEMIDE
     Indication: CARDIAC FAILURE CONGESTIVE
     Route: 065
  14. PRADAXA [Concomitant]
     Active Substance: DABIGATRAN ETEXILATE MESYLATE
     Indication: ATRIAL FIBRILLATION
     Route: 065
  15. ENANTYUM [Concomitant]
     Active Substance: DEXKETOPROFEN TROMETAMOL
     Indication: ARTHRALGIA
     Dosage: 25 MG, BID
     Route: 048
     Dates: start: 2016, end: 2016
  16. ALDACTONE [Concomitant]
     Active Substance: SPIRONOLACTONE
     Indication: HYPERTENSIVE HEART DISEASE
     Dosage: 1 TAB, QD
     Route: 048
     Dates: start: 2016, end: 2016
  17. ELIQUIS [Interacting]
     Active Substance: APIXABAN
     Indication: CEREBROVASCULAR ACCIDENT
     Route: 065

REACTIONS (3)
  - Drug interaction [Unknown]
  - Upper gastrointestinal haemorrhage [Fatal]
  - Cerebral haemorrhage [Fatal]

NARRATIVE: CASE EVENT DATE: 20160918
